FAERS Safety Report 8890310 (Version 1)
Quarter: 2012Q4

REPORT INFORMATION
  Report Type: 
  Country: US (occurrence: US)
  Receive Date: 20121107
  Receipt Date: 20121107
  Transmission Date: 20130627
  Serious: No
  Sender: FDA-Public Use
  Company Number: US-009507513-1211USA002041

PATIENT
  Age: 34 Year
  Sex: Male

DRUGS (1)
  1. SINGULAIR [Suspect]
     Route: 048

REACTIONS (5)
  - Irritable bowel syndrome [Unknown]
  - Abdominal distension [Unknown]
  - Dyspnoea [Unknown]
  - Pain [Unknown]
  - Abdominal pain upper [Unknown]
